FAERS Safety Report 12080275 (Version 3)
Quarter: 2016Q3

REPORT INFORMATION
  Report Type: Spontaneous
  Country: FR (occurrence: FR)
  Receive Date: 20160216
  Receipt Date: 20160815
  Transmission Date: 20161109
  Serious: Yes (Hospitalization)
  Sender: FDA-Public Use
  Company Number: FR-PFIZER INC-2016079975

PATIENT
  Age: 64 Year
  Sex: Female

DRUGS (6)
  1. ZOLOFT [Suspect]
     Active Substance: SERTRALINE HYDROCHLORIDE
     Indication: DEPRESSION
     Dosage: 25 MG, 1X/DAY
     Route: 048
  2. AMIODARONE [Concomitant]
     Active Substance: AMIODARONE
     Dosage: ^^200^^, 1X/DAY
  3. KARDEGIC [Concomitant]
     Active Substance: ASPIRIN LYSINE
     Dosage: ^^75^^, 1X/DAY
  4. SERESTA [Concomitant]
     Active Substance: OXAZEPAM
     Dosage: ^^10^^
  5. HEMIGOXINE NATIVELLE [Concomitant]
     Active Substance: DIGOXIN
     Dosage: UNK, 1X/DAY
  6. ZOLPIDEM [Concomitant]
     Active Substance: ZOLPIDEM\ZOLPIDEM TARTRATE
     Dosage: ^^10^^, 1X/DAY

REACTIONS (8)
  - Confusional state [Unknown]
  - Vomiting [Unknown]
  - Abnormal behaviour [Unknown]
  - Paraneoplastic syndrome [Unknown]
  - Hyponatraemia [Recovering/Resolving]
  - Inappropriate antidiuretic hormone secretion [Unknown]
  - Pupils unequal [Unknown]
  - Malaise [Recovered/Resolved]

NARRATIVE: CASE EVENT DATE: 20160106
